FAERS Safety Report 25878336 (Version 1)
Quarter: 2025Q4

REPORT INFORMATION
  Report Type: Spontaneous
  Country: US (occurrence: None)
  Receive Date: 20251002
  Receipt Date: 20251002
  Transmission Date: 20260117
  Serious: Yes (Death)
  Sender: FDA-CTU
  Company Number: None

PATIENT
  Age: 70 Year
  Sex: Female
  Weight: 86.4 kg

DRUGS (25)
  1. GEMCITABINE [Suspect]
     Active Substance: GEMCITABINE
     Dosage: OTHER FREQUENCY : DAYS 1,8;?
     Route: 042
     Dates: start: 20250508, end: 20250911
  2. CISPLATIN [Suspect]
     Active Substance: CISPLATIN
     Dosage: OTHER FREQUENCY : DAYS 1, 8;?
     Route: 042
     Dates: start: 20250508, end: 20250911
  3. Albumin Human 25% Infusion [Concomitant]
     Dates: start: 20250921, end: 20250924
  4. cefTRIAXone 2g in sodium chloride .9% NS, 100mL MBP ever 24 hours [Concomitant]
     Dates: start: 20250916, end: 20250920
  5. Lactated ringers (LR) BOLUS 1,000 mL [Concomitant]
     Dates: start: 20250915, end: 20250915
  6. Acetylcysteine (ACETADOTE) 26.88 g in 1200 mL [Concomitant]
     Dates: start: 20250924, end: 20250924
  7. Ascorbic acid (VITAMIN C) tablet 500 mg [Concomitant]
     Dates: start: 20250924, end: 20250924
  8. Etomidate (AMIDATE) injection 14 mg [Concomitant]
     Dates: start: 20250923, end: 20250923
  9. FentaNYL (PF) in sodium chloride 0.9% 50 mcg/mL infusion, titrated 0-4 [Concomitant]
     Dates: start: 20250923, end: 20250924
  10. Filgrastim -SNDZ (ZARXIO) injection 5 mcg/kg [Concomitant]
     Dates: start: 20250922, end: 20250924
  11. Folic acid (FOLVITE) tablet 1 mg [Concomitant]
     Dates: start: 20250916, end: 20250924
  12. Furosemide (LASIX) injection 40 mg [Concomitant]
     Dates: start: 20250920, end: 20250920
  13. Hydrocortisone sodium succinate (PF) (Solu-CORTEF) injection 50 mg [Concomitant]
     Dates: start: 20250924, end: 20250924
  14. Hydromorphone (DILAUDID) injection 0.4 mg [Concomitant]
     Dates: start: 20250924, end: 20250924
  15. Lactulose (ENULOSE) 10 gram/15 mL solution 20 g [Concomitant]
     Dates: start: 20250922, end: 20250922
  16. Morphine injection 2 mg/mL [Concomitant]
     Dates: start: 20250925, end: 20250925
  17. Multivitamin with minerals oral liquid 15 mL [Concomitant]
     Dates: start: 20250924, end: 20250924
  18. Norepinephrine (LEVOPHED) 8 mg/250 mL (32 mcg/mL) in D5W infusion [Concomitant]
     Dates: start: 20250923, end: 20250924
  19. Oxacillin 1 gm in sodium chloride 0.9% (NS) every 4 hours [Concomitant]
     Dates: start: 20250920, end: 20250922
  20. Pantoprazole (PROTONIX) 40 mg in sodium chloride 0.9% (NS_ (PF) 10 mL [Concomitant]
     Dates: start: 20250923, end: 20250924
  21. Phenylephrine 1000 mcg/10 mL (100 mcg/mL) in NS (Neo-Synephrine) IV S [Concomitant]
     Dates: start: 20250923, end: 20250923
  22. Phytonadione (vitamin K1) (AQUA-MEPHYTON) 10 mg in sodium chloride 0.9 [Concomitant]
     Dates: start: 20250923, end: 20250924
  23. Piperacillin-tazobactam (ZOSYN) IVPB 2.25 g [Concomitant]
     Dates: start: 20250923, end: 20250923
  24. DURVALUMAB [Suspect]
     Active Substance: DURVALUMAB
  25. YTTRIUM CHLORIDE Y-90 [Suspect]
     Active Substance: YTTRIUM CHLORIDE Y-90

REACTIONS (18)
  - Fall [None]
  - Scalp haematoma [None]
  - Skin laceration [None]
  - Blood creatinine increased [None]
  - Blood urea increased [None]
  - Acute kidney injury [None]
  - Hepatorenal syndrome [None]
  - Bacteraemia [None]
  - Urinary tract infection [None]
  - Renal tubular necrosis [None]
  - Pancytopenia [None]
  - Mental status changes [None]
  - Metabolic encephalopathy [None]
  - Metabolic acidosis [None]
  - Hypoglycaemia [None]
  - Shock [None]
  - Hepatitis fulminant [None]
  - Hepatic failure [None]

NARRATIVE: CASE EVENT DATE: 20250925
